FAERS Safety Report 12720982 (Version 1)
Quarter: 2016Q3

REPORT INFORMATION
  Report Type: Spontaneous
  Country: US (occurrence: US)
  Receive Date: 20160907
  Receipt Date: 20160907
  Transmission Date: 20161109
  Serious: No
  Sender: FDA-Public Use
  Company Number: US-WATSON-2016-06600

PATIENT
  Age: 84 Year
  Sex: Female

DRUGS (3)
  1. ALENDRONATE SODIUM (WATSON LABORATORIES) [Suspect]
     Active Substance: ALENDRONATE SODIUM
     Indication: OSTEOPOROSIS
     Dosage: 70 MG, 1/WEEK
     Route: 048
  2. VITAMINS                           /00067501/ [Concomitant]
     Active Substance: VITAMINS
     Indication: PRODUCT USED FOR UNKNOWN INDICATION
     Dosage: UNK, UNKNOWN
     Route: 065
  3. PREDNISONE. [Concomitant]
     Active Substance: PREDNISONE
     Indication: ARTHRITIS
     Dosage: UNK, UNKNOWN
     Route: 065

REACTIONS (3)
  - Bone disorder [Not Recovered/Not Resolved]
  - Feeling hot [Not Recovered/Not Resolved]
  - Gastrointestinal sounds abnormal [Not Recovered/Not Resolved]
